FAERS Safety Report 19317258 (Version 1)
Quarter: 2021Q2

REPORT INFORMATION
  Report Type: Spontaneous
  Country: US (occurrence: US)
  Receive Date: 20210528
  Receipt Date: 20210528
  Transmission Date: 20210717
  Serious: Yes (Other)
  Sender: FDA-Public Use
  Company Number: US-PURDUE PHARMA-USA-2020-0188185

PATIENT
  Age: 80 Year
  Sex: Female

DRUGS (1)
  1. OXYCODONE HYDROCHLORIDE (SIMILAR TO NDA 22?272) [Suspect]
     Active Substance: OXYCODONE HYDROCHLORIDE
     Indication: HIP ARTHROPLASTY
     Dosage: UNK
     Route: 048
     Dates: start: 20181210, end: 20181230

REACTIONS (6)
  - Sluggishness [Unknown]
  - Illness [Unknown]
  - Unevaluable event [Unknown]
  - Dependence [Unknown]
  - Depression [Unknown]
  - Constipation [Unknown]
